FAERS Safety Report 7651703-7 (Version None)
Quarter: 2011Q3

REPORT INFORMATION
  Report Type: 
  Country: None (occurrence: None)
  Receive Date: 20110802
  Receipt Date: 20110718
  Transmission Date: 20111222
  Serious: Yes (Hospitalization, Other)
  Sender: FDA-Public Use
  Company Number: US-ARROW GEN-2011-11556

PATIENT

DRUGS (4)
  1. GLIPIZIDE [Suspect]
     Indication: ACCIDENTAL POISONING
     Dosage: UNK
  2. GLIMEPIRIDE (UNKNOWN) [Suspect]
     Indication: ACCIDENTAL POISONING
     Dosage: UNK
  3. TOLAZAMIDE (WATSON LABORATORIES) [Suspect]
     Indication: ACCIDENTAL POISONING
     Dosage: UNK
  4. GLYBURIDE [Suspect]
     Indication: ACCIDENTAL POISONING
     Dosage: UNK

REACTIONS (6)
  - HYPOGLYCAEMIA [None]
  - MENTAL STATUS CHANGES [None]
  - VOMITING [None]
  - HYPERHIDROSIS [None]
  - TOXICITY TO VARIOUS AGENTS [None]
  - CONVULSION [None]
